FAERS Safety Report 9152112 (Version 1)
Quarter: 2013Q1

REPORT INFORMATION
  Report Type: Report from Study
  Country: US (occurrence: US)
  Receive Date: 20130308
  Receipt Date: 20130308
  Transmission Date: 20140127
  Serious: Yes (Other)
  Sender: FDA-Public Use
  Company Number: US-009507513-1303USA002873

PATIENT
  Age: 55 Year
  Sex: Male
  Weight: 84.36 kg

DRUGS (4)
  1. BOCEPREVIR [Suspect]
     Indication: CHRONIC HEPATITIS C
     Dosage: 800 MG, 4 TABLETS 3 IN 1 DAY
     Route: 048
     Dates: start: 20111103
  2. RIBAVIRIN [Suspect]
     Indication: CHRONIC HEPATITIS C
     Dosage: UNK, DIVIDED DOSE 1IN 1D, 1200 MG EVERY DAY
     Route: 048
     Dates: start: 20111006
  3. RIBAVIRIN [Suspect]
     Dosage: 600 MG, ONCE A DAY IN DIVIDED DOSES
  4. PEGINTERFERON ALFA-2A [Suspect]
     Indication: CHRONIC HEPATITIS C
     Dosage: 180 MICROGRAM, QW, PRE FILLED SYRINGE
     Route: 058
     Dates: start: 20111006

REACTIONS (12)
  - Asthenia [Recovered/Resolved]
  - Fatigue [Unknown]
  - Dizziness [Unknown]
  - Dyspnoea [Unknown]
  - Red blood cell count decreased [Unknown]
  - Vision blurred [Unknown]
  - Myalgia [Unknown]
  - Pain in extremity [Unknown]
  - Arthralgia [Unknown]
  - Diarrhoea [Unknown]
  - Decreased appetite [Unknown]
  - Anaemia [Unknown]
